FAERS Safety Report 5370691-X (Version None)
Quarter: 2007Q2

REPORT INFORMATION
  Report Type: 
  Country: None (occurrence: None)
  Receive Date: 20070626
  Receipt Date: 20070614
  Transmission Date: 20071010
  Serious: Yes (Other)
  Sender: FDA-Public Use
  Company Number: US-SANOFI-SYNTHELABO-A03200703873

PATIENT
  Sex: Male

DRUGS (5)
  1. ALCOHOL [Suspect]
     Dosage: HALF A BOTTLE OF WINE FIVE TO SIX HOURS PRIOR ADR
     Route: 065
  2. SONATA [Suspect]
     Dosage: UNK
     Route: 065
  3. LUNESTA [Suspect]
     Dosage: UNK
     Route: 065
  4. AMBIEN [Suspect]
     Indication: DRUG USE FOR UNKNOWN INDICATION
     Dosage: UNK
     Route: 048
  5. TOPROL-XL [Concomitant]
     Dosage: UNK
     Route: 065

REACTIONS (5)
  - CONFUSIONAL STATE [None]
  - IMPAIRED DRIVING ABILITY [None]
  - OCULAR HYPERAEMIA [None]
  - ROAD TRAFFIC ACCIDENT [None]
  - SLEEP WALKING [None]
